FAERS Safety Report 13132309 (Version 5)
Quarter: 2019Q4

REPORT INFORMATION
  Report Type: Report from Study
  Country: None (occurrence: US)
  Receive Date: 20170120
  Receipt Date: 20191101
  Transmission Date: 20200122
  Serious: Yes (Death, Hospitalization, Other)
  Sender: FDA-Public Use
  Company Number: US-ABBVIE-17K-163-1840505-00

PATIENT
  Age: 73 Year
  Sex: Male

DRUGS (1)
  1. DUOPA [Suspect]
     Active Substance: CARBIDOPA\LEVODOPA
     Indication: PARKINSON^S DISEASE
     Route: 050
     Dates: start: 20150722, end: 201702

REACTIONS (5)
  - Parkinson^s disease [Fatal]
  - Hypothermia [Recovered/Resolved]
  - Loss of consciousness [Unknown]
  - Skin laceration [Unknown]
  - Fall [Not Recovered/Not Resolved]

NARRATIVE: CASE EVENT DATE: 201701
